FAERS Safety Report 25764934 (Version 1)
Quarter: 2025Q3

REPORT INFORMATION
  Report Type: Spontaneous
  Country: CN (occurrence: CN)
  Receive Date: 20250905
  Receipt Date: 20250905
  Transmission Date: 20251021
  Serious: Yes (Other)
  Sender: Onesource Specialty Pharma
  Company Number: CN-STRIDES ARCOLAB LIMITED-2025OS000602

PATIENT

DRUGS (2)
  1. ETOPOSIDE [Suspect]
     Active Substance: ETOPOSIDE
     Indication: Haematological malignancy
     Route: 065
  2. CYTARABINE [Suspect]
     Active Substance: CYTARABINE
     Indication: Haematological malignancy
     Route: 065

REACTIONS (2)
  - Neoplasm recurrence [Unknown]
  - Off label use [Unknown]
